FAERS Safety Report 11403906 (Version 1)
Quarter: 2015Q3

REPORT INFORMATION
  Report Type: Spontaneous
  Country: US (occurrence: None)
  Receive Date: 20150820
  Receipt Date: 20150820
  Transmission Date: 20151125
  Serious: No
  Sender: FDA-Public Use
  Company Number: None

PATIENT
  Age: 71 Year
  Sex: Male
  Weight: 92 kg

DRUGS (2)
  1. ENOXAPARIN (GENERIC) [Suspect]
     Active Substance: ENOXAPARIN
     Indication: ATRIAL FIBRILLATION
     Dosage: ML?SQ
     Dates: start: 20150619, end: 20150622
  2. ENOXAPARIN (GENERIC) [Suspect]
     Active Substance: ENOXAPARIN
     Indication: THROMBOSIS PROPHYLAXIS
     Dosage: ML?SQ
     Dates: start: 20150619, end: 20150622

REACTIONS (13)
  - Injection site reaction [None]
  - Injection site erythema [None]
  - Injection site bruising [None]
  - Haematoma [None]
  - Injection site pain [None]
  - Product substitution issue [None]
  - Injection site vesicles [None]
  - Emotional distress [None]
  - Blood blister [None]
  - Injection site swelling [None]
  - Discomfort [None]
  - Product quality issue [None]
  - Purpura [None]

NARRATIVE: CASE EVENT DATE: 20150619
